FAERS Safety Report 17059691 (Version 1)
Quarter: 2019Q4

REPORT INFORMATION
  Report Type: Spontaneous
  Country: US (occurrence: US)
  Receive Date: 20191121
  Receipt Date: 20191121
  Transmission Date: 20200122
  Serious: No
  Sender: FDA-Public Use
  Company Number: US-NOVOPROD-629830

PATIENT
  Age: 20 Year
  Sex: Male

DRUGS (1)
  1. NOVOLOG [Suspect]
     Active Substance: INSULIN ASPART
     Indication: PRODUCT USED FOR UNKNOWN INDICATION
     Dosage: 6 UNITS
     Route: 065
     Dates: start: 20170920

REACTIONS (2)
  - Product contamination with body fluid [Unknown]
  - Venous injury [Recovered/Resolved]

NARRATIVE: CASE EVENT DATE: 201810
